FAERS Safety Report 19315292 (Version 1)
Quarter: 2021Q2

REPORT INFORMATION
  Report Type: Spontaneous
  Country: CZ (occurrence: CZ)
  Receive Date: 20210527
  Receipt Date: 20210527
  Transmission Date: 20210717
  Serious: Yes (Death, Other)
  Sender: FDA-Public Use
  Company Number: CZ-SAMSUNG BIOEPIS-SB-2021-12785

PATIENT
  Sex: Female

DRUGS (16)
  1. GOSERELIN [Suspect]
     Active Substance: GOSERELIN
     Indication: BREAST CANCER
     Dosage: UNKNOWN
     Route: 065
     Dates: start: 201009
  2. CYCLOPHOSPHAMIDE. [Suspect]
     Active Substance: CYCLOPHOSPHAMIDE
     Indication: BREAST CANCER
     Dosage: 1000 MG/M2, 4 CYCLES EVERY 21 DAYS
     Route: 065
  3. EPIRUBICIN [Suspect]
     Active Substance: EPIRUBICIN
     Indication: BREAST CANCER
     Dosage: 100 MG/M2, 4 CYCLES EVERY 21 DAYS
     Route: 065
  4. DOCETAXEL. [Suspect]
     Active Substance: DOCETAXEL
     Dosage: 75 MG/M2, 4 CYCLES EVERY 21 DAYS
     Route: 065
  5. DOCETAXEL. [Suspect]
     Active Substance: DOCETAXEL
     Dosage: 6 CYCLES, IN THE INTERVAL OF 21 DAYS
     Route: 065
     Dates: start: 201503, end: 201507
  6. TOMOXIFENE [TAMOXIFEN] [Suspect]
     Active Substance: TAMOXIFEN
     Indication: HORMONE THERAPY
     Dosage: UNKNOWN
     Route: 065
     Dates: start: 201009
  7. DOCETAXEL. [Suspect]
     Active Substance: DOCETAXEL
     Indication: BREAST CANCER
     Dosage: 2 CYCLES, 90 MG/M2,EVERY 3 WEEKS
     Route: 065
  8. TRASTUZUMAB. [Suspect]
     Active Substance: TRASTUZUMAB
     Indication: PRODUCT USED FOR UNKNOWN INDICATION
     Dosage: 8 MG/KG, (FROM THE SECOND ADMINISTRATION AT THE DOSE OF 6 MG/KG)
     Route: 065
     Dates: start: 201503
  9. PACLITAXEL. [Suspect]
     Active Substance: PACLITAXEL
     Indication: BREAST CANCER
     Route: 065
  10. FULVESTRANT. [Suspect]
     Active Substance: FULVESTRANT
     Indication: BREAST CANCER
     Dosage: UNKNOWN
     Route: 065
  11. GOSERELIN [Suspect]
     Active Substance: GOSERELIN
     Indication: HORMONE THERAPY
     Dosage: UNKNOWN
     Route: 065
  12. LETROZOLE. [Suspect]
     Active Substance: LETROZOLE
     Indication: HORMONE THERAPY
     Route: 065
  13. PERTUZUMAB. [Suspect]
     Active Substance: PERTUZUMAB
     Indication: BREAST CANCER METASTATIC
     Route: 065
     Dates: start: 201503
  14. TOMOXIFENE [TAMOXIFEN] [Suspect]
     Active Substance: TAMOXIFEN
     Indication: BREAST CANCER
     Dosage: UNKNOWN
     Route: 065
  15. FULVESTRANT. [Suspect]
     Active Substance: FULVESTRANT
     Indication: HORMONE THERAPY
     Dosage: UNKNOWN
     Route: 065
     Dates: end: 201912
  16. LETROZOLE. [Suspect]
     Active Substance: LETROZOLE
     Indication: BREAST CANCER
     Dosage: UNKNOWN
     Route: 065

REACTIONS (14)
  - Neuropathy peripheral [Unknown]
  - Death [Fatal]
  - Asthenia [Unknown]
  - Alopecia [Unknown]
  - Haematotoxicity [Unknown]
  - Disease progression [Unknown]
  - Duodenal stenosis [Unknown]
  - Nail disorder [Unknown]
  - Disease recurrence [Unknown]
  - Breast cancer metastatic [Unknown]
  - Large intestinal stenosis [Unknown]
  - Concomitant disease aggravated [Unknown]
  - Fatigue [Unknown]
  - Diarrhoea [Unknown]

NARRATIVE: CASE EVENT DATE: 201811
